FAERS Safety Report 8565262-8 (Version None)
Quarter: 2012Q3

REPORT INFORMATION
  Report Type: 
  Country: None (occurrence: None)
  Receive Date: 20120803
  Receipt Date: 20120724
  Transmission Date: 20120928
  Serious: Yes (Hospitalization)
  Sender: FDA-Public Use
  Company Number: US-CELGENEUS-163-21880-12071491

PATIENT
  Sex: Female

DRUGS (2)
  1. REVLIMID [Suspect]
     Indication: MULTIPLE MYELOMA
     Dosage: 5 MILLIGRAM
     Route: 048
     Dates: start: 20120616
  2. VELCADE [Concomitant]
     Indication: MULTIPLE MYELOMA
     Route: 041
     Dates: start: 20110207

REACTIONS (2)
  - OSTEOLYSIS [None]
  - DEVICE RELATED SEPSIS [None]
